FAERS Safety Report 23856151 (Version 1)
Quarter: 2024Q2

REPORT INFORMATION
  Report Type: Spontaneous
  Country: US (occurrence: US)
  Receive Date: 20240515
  Receipt Date: 20240515
  Transmission Date: 20240716
  Serious: No
  Sender: FDA-Public Use
  Company Number: US-TARSUS PHARMACEUTICALS-TSP-US-2024-000039

PATIENT
  Sex: Female

DRUGS (4)
  1. XDEMVY [Suspect]
     Active Substance: LOTILANER
     Indication: Eyelids pruritus
     Dosage: UNK
     Route: 065
  2. XDEMVY [Suspect]
     Active Substance: LOTILANER
     Indication: Eyelid margin crusting
  3. TEARS [HYALURONATE SODIUM] [Concomitant]
     Indication: Product used for unknown indication
     Dosage: UNK
     Route: 065
  4. LOTEMAX [Concomitant]
     Active Substance: LOTEPREDNOL ETABONATE
     Indication: Product used for unknown indication
     Dosage: UNK
     Route: 065

REACTIONS (3)
  - Purpura [Recovered/Resolved]
  - Condition aggravated [Recovered/Resolved]
  - Eyelid rash [Recovered/Resolved]
